FAERS Safety Report 5809173-7 (Version None)
Quarter: 2008Q3

REPORT INFORMATION
  Report Type: 
  Country: None (occurrence: None)
  Receive Date: 20080714
  Receipt Date: 20080702
  Transmission Date: 20090109
  Serious: Yes (Hospitalization)
  Sender: FDA-Public Use
  Company Number: GB-PFIZER INC-2008055281

PATIENT
  Age: 64 Year
  Sex: Male

DRUGS (9)
  1. PREDNISOLONE [Suspect]
  2. ATENOLOL [Suspect]
  3. METHOTREXATE [Suspect]
  4. ETANERCEPT [Suspect]
     Indication: RHEUMATOID ARTHRITIS
  5. ROFECOXIB [Suspect]
  6. DEXTROPROPOXYPHENE/ PARACETAMOL [Suspect]
  7. GLICLAZIDE [Concomitant]
  8. VITAMIN D [Concomitant]
  9. CALCIUM [Concomitant]

REACTIONS (2)
  - DIVERTICULUM [None]
  - ENTEROVESICAL FISTULA [None]
